FAERS Safety Report 8230956-0 (Version None)
Quarter: 2012Q1

REPORT INFORMATION
  Report Type: 
  Country: None (occurrence: None)
  Receive Date: 20120320
  Receipt Date: 20120307
  Transmission Date: 20120608
  Serious: Yes (Hospitalization)
  Sender: FDA-Public Use
  Company Number: 2012SP010343

PATIENT
  Age: 66 Year
  Sex: Male
  Weight: 62 kg

DRUGS (15)
  1. LASIX [Concomitant]
  2. JUZEN-TAIHO-TO [Concomitant]
  3. GASTROM [Concomitant]
  4. PEG-INTRON [Suspect]
     Indication: HEPATITIS C
     Dosage: 1.5 MCG/KG;QW;SC
     Route: 058
     Dates: start: 20120111
  5. REBETOL [Suspect]
     Indication: HEPATITIS C
     Dosage: 800 MG;QD;PO;400 MG;QD;PO;200 MG;QD;PO
     Route: 048
     Dates: start: 20120111, end: 20120131
  6. REBETOL [Suspect]
     Indication: HEPATITIS C
     Dosage: 800 MG;QD;PO;400 MG;QD;PO;200 MG;QD;PO
     Route: 048
     Dates: start: 20120215
  7. REBETOL [Suspect]
     Indication: HEPATITIS C
     Dosage: 800 MG;QD;PO;400 MG;QD;PO;200 MG;QD;PO
     Route: 048
     Dates: start: 20120201, end: 20120214
  8. INTERFERON [Concomitant]
  9. CELECOXIB [Concomitant]
  10. MIGLITOL [Concomitant]
  11. OMEPRAZOLE [Concomitant]
  12. MAGMITT [Concomitant]
  13. RIBAVIRIN [Concomitant]
  14. TELAVIC (TELAPREVIR) (INVESTIGATIONAL DRUG) [Suspect]
     Indication: HEPATITIS C
     Dosage: 2250 MG;QD;PO; 1500 MG;QD;PO
     Route: 048
     Dates: start: 20120111
  15. TELAVIC (TELAPREVIR) (INVESTIGATIONAL DRUG) [Suspect]
     Indication: HEPATITIS C
     Dosage: 2250 MG;QD;PO; 1500 MG;QD;PO
     Route: 048
     Dates: start: 20120215

REACTIONS (2)
  - PROSTATITIS [None]
  - HAEMOGLOBIN DECREASED [None]
